FAERS Safety Report 7328071-3 (Version None)
Quarter: 2011Q1

REPORT INFORMATION
  Report Type: 
  Country: None (occurrence: None)
  Receive Date: 20110303
  Receipt Date: 20110223
  Transmission Date: 20110831
  Serious: Yes (Other)
  Sender: FDA-Public Use
  Company Number: NL-JNJFOC-20110208340

PATIENT
  Sex: Female

DRUGS (6)
  1. AZATHIOPRINE SODIUM [Suspect]
     Indication: HIDRADENITIS
     Route: 048
  2. TETRACYCLINE [Suspect]
     Indication: HIDRADENITIS
     Route: 048
  3. AZATHIOPRINE SODIUM [Suspect]
     Indication: COLITIS ULCERATIVE
     Route: 048
  4. ANDROCUR [Suspect]
     Indication: HIDRADENITIS
     Route: 048
  5. REMICADE [Suspect]
     Indication: HIDRADENITIS
     Route: 042
  6. REMICADE [Suspect]
     Indication: COLITIS ULCERATIVE
     Route: 042

REACTIONS (1)
  - MENINGIOMA [None]
